FAERS Safety Report 10856161 (Version 1)
Quarter: 2015Q1

REPORT INFORMATION
  Report Type: Spontaneous
  Country: DK (occurrence: CA)
  Receive Date: 20150223
  Receipt Date: 20150223
  Transmission Date: 20150721
  Serious: Yes (Death)
  Sender: FDA-Public Use
  Company Number: CA-FRI-1000073823

PATIENT
  Age: 48 Year
  Sex: Male

DRUGS (4)
  1. ESCITALOPRAM [Suspect]
     Active Substance: ESCITALOPRAM OXALATE
     Indication: ANXIETY
     Route: 065
  2. ZOPICLONE [Suspect]
     Active Substance: ZOPICLONE
     Indication: INSOMNIA
     Route: 065
  3. ROSUVASTATIN [Concomitant]
     Active Substance: ROSUVASTATIN
  4. SENNA [Concomitant]
     Active Substance: SENNA LEAF\SENNOSIDES\SENNOSIDES A AND B

REACTIONS (10)
  - Hallucination, visual [Fatal]
  - Suicidal ideation [Fatal]
  - Overdose [Fatal]
  - Abnormal behaviour [Fatal]
  - Depression [Fatal]
  - Mood swings [Fatal]
  - Completed suicide [Fatal]
  - Hyperhidrosis [Fatal]
  - Musculoskeletal chest pain [Fatal]
  - Chest pain [Fatal]
